FAERS Safety Report 4459038-0 (Version None)
Quarter: 2004Q3

REPORT INFORMATION
  Report Type: 
  Country: None (occurrence: None)
  Receive Date: 20040927
  Receipt Date: 20040915
  Transmission Date: 20050211
  Serious: Yes (Death, Hospitalization)
  Sender: FDA-Public Use
  Company Number: GB-JNJFOC-20040904726

PATIENT
  Sex: Male

DRUGS (13)
  1. REMICADE [Suspect]
     Indication: RHEUMATOID ARTHRITIS
     Route: 042
  2. VITAMIN B COMPLEX CAP [Concomitant]
     Route: 065
  3. BENZYDAMINE [Concomitant]
     Route: 065
  4. CO-CARELDOPA [Concomitant]
     Route: 065
  5. CO-CARELDOPA [Concomitant]
     Route: 065
  6. ADCAL [Concomitant]
     Route: 065
  7. LANSOPRAZOLE [Concomitant]
     Route: 065
  8. PREDNISOLONE [Concomitant]
     Route: 065
  9. RISEDRONATE [Concomitant]
     Route: 065
  10. PARACETAMOL [Concomitant]
     Route: 065
  11. CARMELLOSE [Concomitant]
     Route: 065
  12. METHOTREXATE [Concomitant]
     Route: 065
  13. FOLIC ACID [Concomitant]
     Route: 065

REACTIONS (2)
  - CELLULITIS [None]
  - GENERAL PHYSICAL HEALTH DETERIORATION [None]
